FAERS Safety Report 12474517 (Version 1)
Quarter: 2016Q2

REPORT INFORMATION
  Report Type: Spontaneous
  Country: FR (occurrence: FR)
  Receive Date: 20160617
  Receipt Date: 20160617
  Transmission Date: 20160815
  Serious: Yes (Other)
  Sender: FDA-Public Use
  Company Number: FR-ROCHE-1777408

PATIENT
  Age: 35 Year
  Sex: Male

DRUGS (4)
  1. SOFOSBUVIR [Concomitant]
     Active Substance: SOFOSBUVIR
     Route: 065
  2. PLASMA EXCHANGE [Concomitant]
     Active Substance: ALBUMIN HUMAN
     Route: 065
  3. MABTHERA [Suspect]
     Active Substance: RITUXIMAB
     Indication: POLYARTERITIS NODOSA
     Route: 042
  4. DACLATASVIR. [Concomitant]
     Active Substance: DACLATASVIR
     Route: 065

REACTIONS (2)
  - Arteriospasm coronary [Unknown]
  - Off label use [Unknown]
